FAERS Safety Report 16189600 (Version 2)
Quarter: 2019Q2

REPORT INFORMATION
  Report Type: Spontaneous
  Country: ES (occurrence: ES)
  Receive Date: 20190412
  Receipt Date: 20190417
  Transmission Date: 20190711
  Serious: Yes (Other)
  Sender: FDA-Public Use
  Company Number: ES-EMD SERONO-9083423

PATIENT
  Age: 32 Year
  Sex: Female

DRUGS (4)
  1. MAVENCLAD [Suspect]
     Active Substance: CLADRIBINE
     Dosage: SECOND WEEK THERAPY
     Dates: start: 20190216
  2. VENLAFAXINE [Concomitant]
     Active Substance: VENLAFAXINE HYDROCHLORIDE
     Indication: ANTIDEPRESSANT THERAPY
  3. MAVENCLAD [Suspect]
     Active Substance: CLADRIBINE
     Indication: MULTIPLE SCLEROSIS
     Dosage: FIRST WEEK THERAPY
     Dates: start: 20190116
  4. PAROXETINE. [Concomitant]
     Active Substance: PAROXETINE
     Indication: ANTIDEPRESSANT THERAPY

REACTIONS (4)
  - Intentional product misuse [Unknown]
  - Maternal exposure timing unspecified [Recovered/Resolved]
  - Abortion spontaneous [Recovered/Resolved]
  - Contraindication to medical treatment [Unknown]

NARRATIVE: CASE EVENT DATE: 201901
